FAERS Safety Report 15351847 (Version 1)
Quarter: 2018Q3

REPORT INFORMATION
  Report Type: Spontaneous
  Country: US (occurrence: US)
  Receive Date: 20180829
  Receipt Date: 20180829
  Transmission Date: 20181010
  Serious: Yes (Other)
  Sender: FDA-Public Use
  Company Number: None

PATIENT
  Age: 60 Year
  Sex: Female
  Weight: 107.5 kg

DRUGS (1)
  1. MOMETASONE FUROATE 50MCG [Suspect]
     Active Substance: MOMETASONE FUROATE
     Indication: EUSTACHIAN TUBE DYSFUNCTION
     Route: 045
     Dates: start: 200306

REACTIONS (3)
  - Sinus pain [None]
  - Product substitution issue [None]
  - Headache [None]
